FAERS Safety Report 7433448-1 (Version None)
Quarter: 2011Q2

REPORT INFORMATION
  Report Type: 
  Country: None (occurrence: None)
  Receive Date: 20110422
  Receipt Date: 20110412
  Transmission Date: 20111010
  Serious: Yes (Death, Hospitalization)
  Sender: FDA-Public Use
  Company Number: HU-ROCHE-767375

PATIENT
  Sex: Male
  Weight: 110 kg

DRUGS (2)
  1. XELODA [Suspect]
     Route: 048
     Dates: start: 20110201
  2. MARCUMAR [Concomitant]
     Indication: THROMBOSIS PROPHYLAXIS

REACTIONS (3)
  - RESPIRATORY FAILURE [None]
  - SEPSIS [None]
  - CIRCULATORY COLLAPSE [None]
